FAERS Safety Report 17307342 (Version 2)
Quarter: 2020Q1

REPORT INFORMATION
  Report Type: Spontaneous
  Country: US (occurrence: US)
  Receive Date: 20200123
  Receipt Date: 20200201
  Transmission Date: 20200409
  Serious: Yes (Death, Other)
  Sender: FDA-Public Use
  Company Number: US-UNITED THERAPEUTICS-UNT-2020-000704

PATIENT
  Age: 3 Year
  Sex: Male
  Weight: 16.6 kg

DRUGS (11)
  1. PREDNISOLONE. [Concomitant]
     Active Substance: PREDNISOLONE
     Indication: PRODUCT USED FOR UNKNOWN INDICATION
     Route: 065
  2. INTERLEUKIN-2 [Concomitant]
     Active Substance: ALDESLEUKIN
     Indication: PRODUCT USED FOR UNKNOWN INDICATION
     Dosage: UNK
     Route: 065
  3. DIPHENHYDRAMINE. [Concomitant]
     Active Substance: DIPHENHYDRAMINE
     Indication: PRODUCT USED FOR UNKNOWN INDICATION
     Route: 065
  4. ONDANSETRON [Concomitant]
     Active Substance: ONDANSETRON
     Indication: PRODUCT USED FOR UNKNOWN INDICATION
     Route: 065
  5. PANTOPRAZOLE [Concomitant]
     Active Substance: PANTOPRAZOLE
     Indication: PRODUCT USED FOR UNKNOWN INDICATION
     Route: 065
  6. HYDROMORPHONE [Concomitant]
     Active Substance: HYDROMORPHONE
     Indication: PRODUCT USED FOR UNKNOWN INDICATION
     Route: 065
  7. UNITUXIN [Suspect]
     Active Substance: DINUTUXIMAB
     Indication: NEUROBLASTOMA
     Dosage: 11.9 MG
     Route: 041
     Dates: start: 20190213, end: 20190215
  8. VITAMIN D [Concomitant]
     Active Substance: VITAMIN D NOS
     Indication: PRODUCT USED FOR UNKNOWN INDICATION
     Route: 065
  9. SARGRAMOSTIM [Concomitant]
     Active Substance: SARGRAMOSTIM
     Indication: PRODUCT USED FOR UNKNOWN INDICATION
     Route: 065
  10. GM-CSF [Suspect]
     Active Substance: GRANULOCYTE-MACROPHAGE COLONY-STIMULATING FACTOR
     Indication: NEUROBLASTOMA
     Dosage: UNK
     Route: 065
  11. ACETAMINOPHEN. [Concomitant]
     Active Substance: ACETAMINOPHEN
     Indication: PRODUCT USED FOR UNKNOWN INDICATION
     Route: 065

REACTIONS (10)
  - Pulse absent [Fatal]
  - Hypotension [Fatal]
  - Splenic infarction [Fatal]
  - Bradycardia [Fatal]
  - Periportal oedema [Unknown]
  - Abdominal rebound tenderness [Unknown]
  - Capillary leak syndrome [Unknown]
  - Pneumatosis [Fatal]
  - Portal venous gas [Fatal]
  - Abdominal distension [Unknown]

NARRATIVE: CASE EVENT DATE: 201902
